FAERS Safety Report 14873949 (Version 1)
Quarter: 2018Q2

REPORT INFORMATION
  Report Type: Spontaneous
  Country: US (occurrence: US)
  Receive Date: 20180510
  Receipt Date: 20180510
  Transmission Date: 20180711
  Serious: No
  Sender: FDA-Public Use
  Company Number: US-MALLINCKRODT-T201703165

PATIENT
  Sex: Female
  Weight: 56 kg

DRUGS (2)
  1. METHADOSE [Suspect]
     Active Substance: METHADONE HYDROCHLORIDE
     Indication: DRUG DEPENDENCE
     Dosage: 100 MG/ML,1:70MG AND 2:30 MG
     Route: 048
     Dates: start: 20170703
  2. METHADOSE [Suspect]
     Active Substance: METHADONE HYDROCHLORIDE
     Dosage: 60 IN THE AM AND 40 IN THE AFTERNOON
     Dates: start: 20170808

REACTIONS (22)
  - Gastric disorder [Unknown]
  - Asthenia [Unknown]
  - Abdominal pain upper [Unknown]
  - Rash [Unknown]
  - Weight decreased [Unknown]
  - Withdrawal syndrome [Unknown]
  - Pruritus [Unknown]
  - Decreased appetite [Unknown]
  - Dizziness [Unknown]
  - Nausea [Unknown]
  - Fatigue [Unknown]
  - Pharyngeal hypoaesthesia [Unknown]
  - Atrophic glossitis [Unknown]
  - Decreased interest [Unknown]
  - Hypotension [Unknown]
  - Hypoaesthesia oral [Unknown]
  - Abdominal distension [Unknown]
  - Migraine [Unknown]
  - Dysphonia [Unknown]
  - Anxiety [Unknown]
  - Hyperhidrosis [Unknown]
  - Feeling abnormal [Unknown]
